FAERS Safety Report 8904275 (Version 1)
Quarter: 2012Q4

REPORT INFORMATION
  Report Type: 
  Country: US (occurrence: US)
  Receive Date: 20121112
  Receipt Date: 20121112
  Transmission Date: 20130627
  Serious: Yes (Hospitalization)
  Sender: FDA-Public Use
  Company Number: US-GLAXOSMITHKLINE-A1000598A

PATIENT
  Age: 63 Year
  Sex: Female

DRUGS (2)
  1. FLOLAN [Suspect]
     Indication: PRODUCT USED FOR UNKNOWN INDICATION
     Dosage: 24NGKM Continuous
     Route: 042
     Dates: start: 20120117
  2. REVATIO [Concomitant]

REACTIONS (1)
  - Hypoxia [Unknown]
